FAERS Safety Report 10306061 (Version 4)
Quarter: 2014Q4

REPORT INFORMATION
  Report Type: Report from Study
  Country: GB (occurrence: GB)
  Receive Date: 20140715
  Receipt Date: 20141201
  Transmission Date: 20150528
  Serious: Yes (Hospitalization)
  Sender: FDA-Public Use
  Company Number: GB-GLAXOSMITHKLINE-B1012770A

PATIENT
  Age: 64 Year
  Sex: Male
  Weight: 106.8 kg

DRUGS (3)
  1. TRAMETINIB [Suspect]
     Active Substance: TRAMETINIB
     Dosage: UNK
     Dates: start: 20140707
  2. TRAMETINIB [Suspect]
     Active Substance: TRAMETINIB
     Indication: METASTASIS
     Dosage: 2 MG, QD
     Route: 048
     Dates: start: 20140704
  3. PACLITAXEL. [Suspect]
     Active Substance: PACLITAXEL
     Indication: METASTASIS
     Route: 042
     Dates: start: 20140704

REACTIONS (3)
  - Humerus fracture [Recovered/Resolved with Sequelae]
  - Presyncope [Recovering/Resolving]
  - Fall [Recovered/Resolved]

NARRATIVE: CASE EVENT DATE: 20140704
